FAERS Safety Report 4597571-1 (Version None)
Quarter: 2005Q1

REPORT INFORMATION
  Report Type: 
  Country: None (occurrence: None)
  Receive Date: 20050228
  Receipt Date: 20050228
  Transmission Date: 20050727
  Serious: Yes (Hospitalization)
  Sender: FDA-Public Use
  Company Number: None

PATIENT
  Age: 19 Year
  Sex: Male
  Weight: 61.2356 kg

DRUGS (2)
  1. ACCUTANE [Suspect]
     Indication: ACNE
     Dosage: ONCE PER DAY
     Dates: start: 19981015, end: 19991015
  2. ACCUTANE [Suspect]
     Indication: ACNE
     Dosage: ONCE PER DAY
     Dates: start: 20000405, end: 20000605

REACTIONS (5)
  - APHASIA [None]
  - DEPRESSION [None]
  - DYSGRAPHIA [None]
  - EDUCATIONAL PROBLEM [None]
  - PSYCHOTIC DISORDER [None]
